FAERS Safety Report 12234428 (Version 4)
Quarter: 2017Q3

REPORT INFORMATION
  Report Type: Spontaneous
  Country: US (occurrence: US)
  Receive Date: 20160404
  Receipt Date: 20170828
  Transmission Date: 20171127
  Serious: No
  Sender: FDA-Public Use
  Company Number: US-SA-2016SA062036

PATIENT
  Age: 4 Year
  Sex: Male
  Weight: 5.5 kg

DRUGS (5)
  1. MYOZYME [Suspect]
     Active Substance: ALGLUCOSIDASE ALFA
     Indication: GLYCOGEN STORAGE DISEASE TYPE II
     Route: 041
  2. METHOTREXATE. [Concomitant]
     Active Substance: METHOTREXATE
     Route: 058
  3. RITUXIMAB. [Concomitant]
     Active Substance: RITUXIMAB
  4. RITUXIMAB. [Concomitant]
     Active Substance: RITUXIMAB
  5. RITUXIMAB. [Concomitant]
     Active Substance: RITUXIMAB

REACTIONS (1)
  - Drug specific antibody present [Not Recovered/Not Resolved]
